FAERS Safety Report 5414385-0 (Version None)
Quarter: 2007Q3

REPORT INFORMATION
  Report Type: 
  Country: None (occurrence: None)
  Receive Date: 20070814
  Receipt Date: 20070806
  Transmission Date: 20080115
  Serious: Yes (Hospitalization)
  Sender: FDA-Public Use
  Company Number: US-SHR-US-2007-029100

PATIENT
  Age: 68 Year
  Sex: Female

DRUGS (5)
  1. BETASERON [Suspect]
     Dosage: 8 MIU, EVERY 2D
     Route: 058
     Dates: start: 20070608
  2. CARDIAC THERAPY [Concomitant]
  3. VALIUM [Concomitant]
  4. URINARY ANTISPASMODICS [Concomitant]
  5. PROZAC [Concomitant]

REACTIONS (5)
  - ASTHENIA [None]
  - DEPRESSION [None]
  - LETHARGY [None]
  - NAUSEA [None]
  - VENTRICULAR DYSFUNCTION [None]
